FAERS Safety Report 7719724-3 (Version None)
Quarter: 2011Q3

REPORT INFORMATION
  Report Type: 
  Country: None (occurrence: None)
  Receive Date: 20110831
  Receipt Date: 20110826
  Transmission Date: 20111222
  Serious: Yes (Hospitalization, Other)
  Sender: FDA-Public Use
  Company Number: US-AMGEN-USASP2011032138

PATIENT
  Age: 6 Year
  Sex: Female
  Weight: 16.9 kg

DRUGS (2)
  1. ENBREL [Suspect]
     Indication: JUVENILE ARTHRITIS
     Dosage: 14 MG, QWK
     Route: 058
     Dates: start: 20101001, end: 20110401
  2. METHOTREXATE [Concomitant]
     Indication: JUVENILE ARTHRITIS
     Dosage: 7.5 MG, QWK
     Route: 048
     Dates: start: 20100917, end: 20110418

REACTIONS (2)
  - ABDOMINAL MASS [None]
  - ABDOMINAL PAIN [None]
